FAERS Safety Report 13795641 (Version 1)
Quarter: 2017Q3

REPORT INFORMATION
  Report Type: Not Available
  Country: US (occurrence: US)
  Receive Date: 20170726
  Receipt Date: 20170726
  Transmission Date: 20171127
  Serious: No
  Sender: FDA-Public Use
  Company Number: US-NEUROCRINE BIOSCIENCES INC.-2017NBI00446

PATIENT
  Age: 63 Year
  Sex: Male

DRUGS (18)
  1. FISH OIL [Concomitant]
     Active Substance: FISH OIL
  2. ATROVENT [Concomitant]
     Active Substance: IPRATROPIUM BROMIDE
  3. TRILEPTAL [Concomitant]
     Active Substance: OXCARBAZEPINE
  4. XENAZINE [Concomitant]
     Active Substance: TETRABENAZINE
  5. INGREZZA [Suspect]
     Active Substance: VALBENAZINE
     Indication: TARDIVE DYSKINESIA
     Route: 048
     Dates: start: 20170615, end: 2017
  6. ATIVAN [Concomitant]
     Active Substance: LORAZEPAM
  7. FLOVENT [Concomitant]
     Active Substance: FLUTICASONE PROPIONATE
  8. ATORVASTATIN [Concomitant]
     Active Substance: ATORVASTATIN
  9. CLEOCIN [Concomitant]
     Active Substance: CLINDAMYCIN PHOSPHATE
  10. PRISTIQ EXTENDED-RELEASE [Concomitant]
     Active Substance: DESVENLAFAXINE SUCCINATE
  11. SULFACETAMIDE. [Concomitant]
     Active Substance: SULFACETAMIDE
  12. KLONOPIN [Concomitant]
     Active Substance: CLONAZEPAM
  13. LEVOTHYROXINE. [Concomitant]
     Active Substance: LEVOTHYROXINE
  14. LUNESTA [Concomitant]
     Active Substance: ESZOPICLONE
  15. VITAMIN B6 [Concomitant]
     Active Substance: PYRIDOXINE HYDROCHLORIDE
  16. WELLBUTRIN [Concomitant]
     Active Substance: BUPROPION HYDROCHLORIDE
  17. ALLEGRA [Concomitant]
     Active Substance: FEXOFENADINE HYDROCHLORIDE
  18. VITAMIN E [Concomitant]
     Active Substance: .ALPHA.-TOCOPHEROL

REACTIONS (1)
  - Drug ineffective [Recovered/Resolved]

NARRATIVE: CASE EVENT DATE: 20170615
